FAERS Safety Report 5551156-9 (Version None)
Quarter: 2007Q4

REPORT INFORMATION
  Report Type: 
  Country: None (occurrence: None)
  Receive Date: 20071212
  Receipt Date: 20070523
  Transmission Date: 20080405
  Serious: No
  Sender: FDA-Public Use
  Company Number: US-AMGEN-KDL226316

PATIENT
  Sex: Female

DRUGS (3)
  1. ENBREL [Suspect]
     Indication: PSORIATIC ARTHROPATHY
     Route: 058
     Dates: start: 20060508
  2. ANTIBIOTICS [Concomitant]
  3. UNSPECIFIED INHALER [Concomitant]

REACTIONS (4)
  - BACK PAIN [None]
  - DYSPNOEA [None]
  - PNEUMONIA [None]
  - WHEEZING [None]
